FAERS Safety Report 4862637-5 (Version None)
Quarter: 2005Q4

REPORT INFORMATION
  Report Type: 
  Country: None (occurrence: None)
  Receive Date: 20051219
  Receipt Date: 20051219
  Transmission Date: 20060501
  Serious: Yes (Life-Threatening)
  Sender: FDA-Public Use
  Company Number: None

PATIENT
  Age: 49 Year
  Sex: Male

DRUGS (2)
  1. NAPROXEN [Suspect]
     Indication: OSTEOARTHRITIS
     Dosage: 10-12 TABS  DAILY  PO  (DURATION: SEVERAL WEEKS)
     Route: 048
  2. ASPIRIN [Suspect]
     Indication: OSTEOARTHRITIS
     Dosage: 4-6 TABS  DAILY  PO  (DURATION: SEVERAL WEEKS)
     Route: 048

REACTIONS (7)
  - ANAEMIA [None]
  - ASTHENIA [None]
  - CHEST PAIN [None]
  - DIZZINESS [None]
  - FAECES DISCOLOURED [None]
  - GASTRIC ULCER [None]
  - PNEUMONIA [None]
